FAERS Safety Report 21161771 (Version 5)
Quarter: 2022Q4

REPORT INFORMATION
  Report Type: Report from Study
  Country: IL (occurrence: IL)
  Receive Date: 20220802
  Receipt Date: 20221006
  Transmission Date: 20230112
  Serious: Yes (Death, Hospitalization)
  Sender: FDA-Public Use
  Company Number: IL-ABBVIE-21K-082-3930123-00

PATIENT
  Age: 63 Year
  Sex: Male
  Weight: 91 kg

DRUGS (19)
  1. VENCLEXTA [Suspect]
     Active Substance: VENETOCLAX
     Indication: Chronic lymphocytic leukaemia
     Dosage: RAMP UP, 	20 MILLIGRAM
     Route: 048
     Dates: start: 20210302, end: 20210308
  2. VENCLEXTA [Suspect]
     Active Substance: VENETOCLAX
     Indication: Chronic lymphocytic leukaemia
     Dosage: RAMP UP, 50 MILLIGRAM
     Route: 048
     Dates: start: 20210309, end: 20210315
  3. VENCLEXTA [Suspect]
     Active Substance: VENETOCLAX
     Indication: Chronic lymphocytic leukaemia
     Dosage: RAMP UP, 	100 MILLIGRAM
     Route: 048
     Dates: start: 20210316, end: 20210322
  4. VENCLEXTA [Suspect]
     Active Substance: VENETOCLAX
     Indication: Chronic lymphocytic leukaemia
     Dosage: RAMP UP, 200 MILLIGRAM
     Route: 048
     Dates: start: 20210323, end: 20210329
  5. VENCLEXTA [Suspect]
     Active Substance: VENETOCLAX
     Indication: Chronic lymphocytic leukaemia
     Dosage: 400 MILLIGRAM
     Route: 048
     Dates: start: 20210330, end: 20220210
  6. OBINUTUZUMAB [Suspect]
     Active Substance: OBINUTUZUMAB
     Indication: Chronic lymphocytic leukaemia
     Dosage: CYCLE 1
     Route: 042
     Dates: start: 20210218, end: 20210218
  7. OBINUTUZUMAB [Suspect]
     Active Substance: OBINUTUZUMAB
     Indication: Chronic lymphocytic leukaemia
     Dosage: CYCLE 2
     Route: 042
     Dates: start: 20210302, end: 20210302
  8. OBINUTUZUMAB [Suspect]
     Active Substance: OBINUTUZUMAB
     Indication: Chronic lymphocytic leukaemia
     Dosage: CYCLE 3
     Route: 042
     Dates: start: 20210406, end: 20210406
  9. OBINUTUZUMAB [Suspect]
     Active Substance: OBINUTUZUMAB
     Indication: Chronic lymphocytic leukaemia
     Dosage: CYCLE 4
     Route: 042
     Dates: start: 20210504, end: 20210504
  10. OBINUTUZUMAB [Suspect]
     Active Substance: OBINUTUZUMAB
     Indication: Chronic lymphocytic leukaemia
     Dosage: CYCLE 5
     Route: 042
     Dates: start: 20210608, end: 20210608
  11. OBINUTUZUMAB [Suspect]
     Active Substance: OBINUTUZUMAB
     Indication: Chronic lymphocytic leukaemia
     Dosage: CYCLE 6
     Route: 042
     Dates: start: 20210611, end: 20210611
  12. ACYCLO-V [Concomitant]
     Indication: Prophylaxis
     Dates: start: 20210131, end: 20220210
  13. ALLOPURINOL [Concomitant]
     Active Substance: ALLOPURINOL
     Indication: Hyperuricaemia
     Dates: start: 20210131, end: 20210504
  14. LANTON [Concomitant]
     Indication: Prophylaxis
     Dates: start: 20210131, end: 20220210
  15. COVID-19 VACCINE [Concomitant]
     Indication: COVID-19 prophylaxis
     Dosage: ONCE
     Route: 030
     Dates: start: 20201226, end: 20201226
  16. COVID-19 VACCINE [Concomitant]
     Indication: COVID-19 prophylaxis
     Dosage: ONCE
     Route: 030
     Dates: start: 20220108, end: 20220108
  17. COVID-19 VACCINE [Concomitant]
     Indication: COVID-19 prophylaxis
     Dosage: ONCE
     Route: 030
     Dates: start: 20210801, end: 20210801
  18. COVID-19 VACCINE [Concomitant]
     Indication: COVID-19 prophylaxis
     Dosage: ONCE
     Route: 030
     Dates: start: 20210117, end: 20210117
  19. PRAMIN [Concomitant]
     Indication: Prophylaxis
     Dates: start: 20210302, end: 20220210

REACTIONS (2)
  - COVID-19 [Fatal]
  - Rash [Recovered/Resolved]

NARRATIVE: CASE EVENT DATE: 20210302
